FAERS Safety Report 10570250 (Version 4)
Quarter: 2019Q1

REPORT INFORMATION
  Report Type: Report from Study
  Country: US (occurrence: US)
  Receive Date: 20141107
  Receipt Date: 20190108
  Transmission Date: 20190417
  Serious: Yes (Other)
  Sender: FDA-Public Use
  Company Number: US-SA-2014SA144865

PATIENT
  Age: 67 Year
  Sex: Female

DRUGS (3)
  1. INSULIN GLARGINE [Suspect]
     Active Substance: INSULIN GLARGINE
     Dosage: 34 DF,UNK
     Route: 065
  2. HUMALOG [Concomitant]
     Active Substance: INSULIN LISPRO
     Dosage: 2 DF,UNK
     Dates: start: 201304
  3. INSULIN GLARGINE [Suspect]
     Active Substance: INSULIN GLARGINE
     Indication: DIABETES MELLITUS
     Dosage: 32 DF,UNK
     Route: 065
     Dates: start: 201304

REACTIONS (8)
  - Hypertension [Unknown]
  - Foot fracture [Unknown]
  - Glycosylated haemoglobin increased [Unknown]
  - Product dose omission [Unknown]
  - Loss of consciousness [Unknown]
  - Tremor [Unknown]
  - Fall [Unknown]
  - Hypoglycaemia [Unknown]
